FAERS Safety Report 12713681 (Version 1)
Quarter: 2016Q3

REPORT INFORMATION
  Report Type: Spontaneous
  Country: US (occurrence: US)
  Receive Date: 20160904
  Receipt Date: 20160904
  Transmission Date: 20161109
  Serious: Yes (Hospitalization, Other)
  Sender: FDA-Public Use
  Company Number: US-CATALENT PHARMA SOLUTIONS-CAT-000058-2016

PATIENT
  Age: 58 Year
  Sex: Female

DRUGS (5)
  1. VALPROIC ACID. [Suspect]
     Active Substance: VALPROIC ACID
     Indication: MOOD ALTERED
  2. LEVOTHYROXINE. [Concomitant]
     Active Substance: LEVOTHYROXINE
     Indication: PRODUCT USED FOR UNKNOWN INDICATION
     Dosage: 175 MCG, QD
     Route: 048
  3. ATORVASTATIN [Concomitant]
     Active Substance: ATORVASTATIN
     Indication: PRODUCT USED FOR UNKNOWN INDICATION
     Dosage: 10 MG AT NIGHT
     Route: 048
  4. METOPROLOL. [Concomitant]
     Active Substance: METOPROLOL
     Indication: PRODUCT USED FOR UNKNOWN INDICATION
     Dosage: 12.5 MG, BID
     Route: 048
  5. VALPROIC ACID. [Suspect]
     Active Substance: VALPROIC ACID
     Indication: BIPOLAR DISORDER
     Dosage: 1000 MG, BID
     Route: 048

REACTIONS (13)
  - Neglect of personal appearance [Unknown]
  - Asthenia [Not Recovered/Not Resolved]
  - Mania [Unknown]
  - Belligerence [Unknown]
  - Anger [Unknown]
  - Affect lability [Unknown]
  - Aggression [Recovered/Resolved]
  - Agitation [Recovered/Resolved]
  - Emotional distress [Unknown]
  - Sinus tachycardia [Unknown]
  - Irritability [Unknown]
  - Hyperammonaemia [Recovered/Resolved]
  - Cognitive disorder [Unknown]
